FAERS Safety Report 7013764-8 (Version None)
Quarter: 2010Q3

REPORT INFORMATION
  Report Type: 
  Country: None (occurrence: None)
  Receive Date: 20100924
  Receipt Date: 20100916
  Transmission Date: 20110219
  Serious: Yes (Hospitalization)
  Sender: FDA-Public Use
  Company Number: PHHY2010US36622

PATIENT
  Sex: Male

DRUGS (1)
  1. GLEEVEC [Suspect]
     Indication: GASTRIC CANCER
     Dosage: 600 MG, PER DAY
     Route: 048
     Dates: start: 20060101

REACTIONS (3)
  - FATIGUE [None]
  - PERFORATED ULCER [None]
  - SURGERY [None]
